FAERS Safety Report 6967712-7 (Version None)
Quarter: 2010Q3

REPORT INFORMATION
  Report Type: 
  Country: None (occurrence: None)
  Receive Date: 20100907
  Receipt Date: 20100826
  Transmission Date: 20110219
  Serious: Yes (Hospitalization, Other)
  Sender: FDA-Public Use
  Company Number: JP-PFIZER INC-2010092766

PATIENT
  Age: 78 Year
  Sex: Male

DRUGS (5)
  1. ZITHROMAC SR [Suspect]
     Indication: BRONCHITIS
     Dosage: 2 G, SINGLE
     Route: 048
     Dates: start: 20100625, end: 20100625
  2. PREDONINE [Concomitant]
     Indication: ASTHMA
     Dosage: 20 MG, DAILY AS NEEDED
     Route: 048
     Dates: start: 20100625
  3. UNIPHYL [Concomitant]
     Indication: ASTHMA
     Dosage: 200 MG, 2X/DAY, AS NEEDED
     Route: 048
     Dates: start: 20100625
  4. OMEPRAL [Concomitant]
     Indication: GASTRITIS
     Dosage: 20 MG, 1X/DAY
     Route: 048
     Dates: start: 20100618
  5. MUCODYNE [Concomitant]
     Indication: BRONCHITIS
     Dosage: 500 MG, 3X/DAY
     Route: 048
     Dates: start: 20100618

REACTIONS (5)
  - DYSGEUSIA [None]
  - GENITAL HERPES [None]
  - HYPOAESTHESIA [None]
  - HYPOTENSION [None]
  - PYREXIA [None]
